FAERS Safety Report 7780579-2 (Version None)
Quarter: 2011Q3

REPORT INFORMATION
  Report Type: 
  Country: None (occurrence: None)
  Receive Date: 20110923
  Receipt Date: 20110912
  Transmission Date: 20111222
  Serious: Yes (Hospitalization)
  Sender: FDA-Public Use
  Company Number: 123300

PATIENT
  Age: 10 Year
  Sex: Male

DRUGS (1)
  1. DAUNORUBICIN HCL [Suspect]
     Indication: B PRECURSOR TYPE ACUTE LEUKAEMIA
     Dosage: 100MG IV
     Route: 042
     Dates: start: 20110526

REACTIONS (4)
  - LABORATORY TEST ABNORMAL [None]
  - ENTEROCOLITIS INFECTIOUS [None]
  - PRESYNCOPE [None]
  - HYPOTENSION [None]
